FAERS Safety Report 8304321-1 (Version None)
Quarter: 2012Q2

REPORT INFORMATION
  Report Type: 
  Country: None (occurrence: None)
  Receive Date: 20120423
  Receipt Date: 20120423
  Transmission Date: 20120825
  Serious: Yes (Other)
  Sender: FDA-Public Use
  Company Number: None

PATIENT
  Age: 58 Year
  Sex: Male
  Weight: 134.26 kg

DRUGS (1)
  1. PROTONIX [Suspect]
     Indication: ULCER
     Dosage: 1 TABLET
     Route: 048
     Dates: start: 20120304, end: 20120306

REACTIONS (6)
  - PRODUCT SUBSTITUTION ISSUE [None]
  - ABDOMINAL PAIN UPPER [None]
  - DIARRHOEA [None]
  - VOMITING [None]
  - DYSPEPSIA [None]
  - GASTROINTESTINAL PAIN [None]
